FAERS Safety Report 8999442 (Version 2)
Quarter: 2013Q1

REPORT INFORMATION
  Report Type: Spontaneous
  Country: US (occurrence: US)
  Receive Date: 20130103
  Receipt Date: 20130107
  Transmission Date: 20140127
  Serious: Yes (Hospitalization)
  Sender: FDA-Public Use
  Company Number: US-GILEAD-2013-0067197

PATIENT
  Age: 53 Year
  Sex: Male

DRUGS (1)
  1. LETAIRIS [Suspect]
     Indication: ATRIAL SEPTAL DEFECT
     Dosage: 5 MG, UNK
     Route: 048
     Dates: start: 20121206

REACTIONS (1)
  - Pleural effusion [Recovering/Resolving]
